FAERS Safety Report 7335442-8 (Version None)
Quarter: 2011Q1

REPORT INFORMATION
  Report Type: 
  Country: None (occurrence: None)
  Receive Date: 20110307
  Receipt Date: 20110303
  Transmission Date: 20110831
  Serious: Yes (Life-Threatening, Hospitalization, Other)
  Sender: FDA-Public Use
  Company Number: FR-BRISTOL-MYERS SQUIBB COMPANY-15536204

PATIENT
  Age: 16 Year
  Sex: Male
  Weight: 100 kg

DRUGS (1)
  1. ABILIFY [Suspect]
     Indication: DELUSIONAL DISORDER, UNSPECIFIED TYPE
     Route: 048
     Dates: start: 20100701, end: 20100801

REACTIONS (2)
  - SOMNOLENCE [None]
  - SUDDEN ONSET OF SLEEP [None]
